FAERS Safety Report 18061971 (Version 1)
Quarter: 2020Q3

REPORT INFORMATION
  Report Type: Spontaneous
  Country: FR (occurrence: FR)
  Receive Date: 20200723
  Receipt Date: 20200723
  Transmission Date: 20201103
  Serious: Yes (Hospitalization)
  Sender: FDA-Public Use
  Company Number: NVSC2020FR201614

PATIENT
  Age: 62 Year
  Sex: Male
  Weight: 93.5 kg

DRUGS (3)
  1. COLCHIMAX (COLCHICINE/PAPAVER SOMNIFERUM POWDER/TIEMONIUM METHYLSULPHATE) [Interacting]
     Active Substance: COLCHICINE\OPIUM\TIEMONIUM METHYLSULFATE
     Indication: GOUT
     Dosage: UNK
     Route: 048
     Dates: start: 20200616, end: 20200619
  2. NEORAL [Suspect]
     Active Substance: CYCLOSPORINE
     Indication: AUTOIMMUNE NEUTROPENIA
     Dosage: 250 MG, QD
     Route: 048
  3. AZITHROMYCIN ANHYDROUS. [Interacting]
     Active Substance: AZITHROMYCIN ANHYDROUS
     Indication: PROPHYLAXIS
     Dosage: 750 MG, QW
     Route: 048

REACTIONS (4)
  - Acute kidney injury [Recovered/Resolved]
  - Diarrhoea [Recovered/Resolved]
  - Vomiting [Recovered/Resolved]
  - Thrombocytopenia [Recovering/Resolving]

NARRATIVE: CASE EVENT DATE: 20200617
